FAERS Safety Report 6505332-9 (Version None)
Quarter: 2009Q4

REPORT INFORMATION
  Report Type: 
  Country: None (occurrence: None)
  Receive Date: 20091218
  Receipt Date: 20091214
  Transmission Date: 20100525
  Serious: Yes (Hospitalization)
  Sender: FDA-Public Use
  Company Number: JP-BAYER-200911691BYL

PATIENT
  Age: 78 Year
  Sex: Male
  Weight: 62 kg

DRUGS (43)
  1. NEXAVAR [Suspect]
     Indication: HEPATIC NEOPLASM MALIGNANT
     Dosage: TOTAL DAILY DOSE: 800 MG  UNIT DOSE: 200 MG
     Route: 048
     Dates: start: 20090313, end: 20090330
  2. NEXAVAR [Suspect]
     Dosage: TOTAL DAILY DOSE: 400 MG  UNIT DOSE: 200 MG
     Route: 048
     Dates: start: 20090702, end: 20091027
  3. NEXAVAR [Suspect]
     Dosage: TOTAL DAILY DOSE: 400 MG  UNIT DOSE: 200 MG
     Route: 048
     Dates: start: 20090604, end: 20090618
  4. NEXAVAR [Suspect]
     Dosage: UNIT DOSE: 200 MG
     Route: 048
     Dates: start: 20090427, end: 20090522
  5. SOLDEM 3A [Suspect]
     Indication: PREMEDICATION
     Route: 042
     Dates: start: 20090313
  6. SOLDEM 3A [Suspect]
     Route: 042
     Dates: start: 20090314, end: 20090315
  7. SOLDEM 3A [Suspect]
     Route: 042
     Dates: start: 20090316, end: 20090318
  8. SOLDEM 3A [Suspect]
     Route: 042
     Dates: start: 20090501, end: 20090502
  9. SOLDEM 3A [Suspect]
     Route: 042
     Dates: start: 20090430
  10. SOLDEM 3A [Suspect]
     Route: 042
     Dates: start: 20090604
  11. SOLDEM 3A [Suspect]
     Route: 042
     Dates: start: 20090605, end: 20090606
  12. TAKEPRON [Concomitant]
     Indication: PROPHYLAXIS AGAINST GASTROINTESTINAL ULCER
     Route: 048
  13. MUCOSOLVAN [Concomitant]
     Route: 048
     Dates: start: 20090313
  14. LOXOPROFEN [Concomitant]
     Route: 048
     Dates: start: 20090313
  15. PURSENNID [Concomitant]
     Indication: CONSTIPATION PROPHYLAXIS
     Route: 048
     Dates: start: 20090313
  16. MAGNESIUM OXIDE [Concomitant]
     Indication: CONSTIPATION PROPHYLAXIS
     Route: 048
     Dates: start: 20090318
  17. LECICARBON [Concomitant]
     Indication: CONSTIPATION PROPHYLAXIS
     Route: 054
     Dates: start: 20090318
  18. POSTERISAN [Concomitant]
     Route: 061
     Dates: start: 20090319
  19. HORIZON [Concomitant]
     Indication: PREMEDICATION
     Route: 042
     Dates: start: 20090313
  20. HORIZON [Concomitant]
     Route: 042
     Dates: start: 20090430
  21. SEISHOKU [Concomitant]
     Indication: PREMEDICATION
     Route: 042
     Dates: start: 20090604
  22. SEISHOKU [Concomitant]
     Route: 042
     Dates: start: 20090430, end: 20090502
  23. SEISHOKU [Concomitant]
     Route: 042
     Dates: start: 20090313
  24. SEISHOKU [Concomitant]
     Route: 042
     Dates: start: 20090430
  25. SEISHOKU [Concomitant]
     Route: 042
     Dates: start: 20090430
  26. SEISHOKU [Concomitant]
     Route: 042
     Dates: start: 20090313, end: 20090315
  27. SEISHOKU [Concomitant]
     Route: 042
     Dates: start: 20090604
  28. SEISHOKU [Concomitant]
     Route: 042
     Dates: start: 20090604, end: 20090606
  29. SEISHOKU [Concomitant]
     Route: 042
     Dates: start: 20090313
  30. PENTAZOCINE LACTATE [Concomitant]
     Indication: PREMEDICATION
     Route: 042
     Dates: start: 20090313
  31. PENTAZOCINE LACTATE [Concomitant]
     Route: 042
     Dates: start: 20090430
  32. GLUCOSE [Concomitant]
     Indication: PREMEDICATION
     Route: 042
     Dates: start: 20090313
  33. GLUCOSE [Concomitant]
     Route: 042
     Dates: start: 20090430
  34. GLUCOSE [Concomitant]
     Route: 042
     Dates: start: 20090604
  35. GRANISETRON HCL [Concomitant]
     Indication: PROPHYLAXIS
     Route: 042
     Dates: start: 20090604, end: 20090606
  36. GRANISETRON HCL [Concomitant]
     Route: 042
     Dates: start: 20090313, end: 20090315
  37. GRANISETRON HCL [Concomitant]
     Route: 042
     Dates: start: 20090430, end: 20090502
  38. LACTEC [Concomitant]
     Indication: PREMEDICATION
     Route: 042
     Dates: start: 20090313
  39. LACTEC [Concomitant]
     Route: 042
     Dates: start: 20090430
  40. LACTEC [Concomitant]
     Route: 042
     Dates: start: 20090604
  41. IA-CALL [Concomitant]
     Route: 042
     Dates: start: 20090313
  42. IA-CALL [Concomitant]
     Route: 042
     Dates: start: 20090430
  43. IA-CALL [Concomitant]
     Route: 042
     Dates: start: 20090604

REACTIONS (11)
  - ASTHENIA [None]
  - DECREASED APPETITE [None]
  - DIZZINESS [None]
  - DYSPHONIA [None]
  - HEPATIC FUNCTION ABNORMAL [None]
  - MALAISE [None]
  - OEDEMA [None]
  - PALMAR-PLANTAR ERYTHRODYSAESTHESIA SYNDROME [None]
  - RASH [None]
  - STOMATITIS [None]
  - TREMOR [None]
